FAERS Safety Report 16325697 (Version 1)
Quarter: 2019Q2

REPORT INFORMATION
  Report Type: Spontaneous
  Country: IT (occurrence: IT)
  Receive Date: 20190517
  Receipt Date: 20190517
  Transmission Date: 20190711
  Serious: Yes (Death)
  Sender: FDA-Public Use
  Company Number: IT-CELGENEUS-ITA-20190504793

PATIENT
  Age: 72 Year
  Sex: Female

DRUGS (3)
  1. DARZALEX [Concomitant]
     Active Substance: DARATUMUMAB
     Indication: PLASMA CELL MYELOMA
     Dosage: 16 MCG/KG
     Route: 042
     Dates: start: 20180806, end: 20190125
  2. DEXAMETHASONE. [Concomitant]
     Active Substance: DEXAMETHASONE
     Indication: PLASMA CELL MYELOMA
     Route: 065
     Dates: start: 20180806, end: 20190125
  3. REVLIMID [Suspect]
     Active Substance: LENALIDOMIDE
     Indication: PLASMA CELL MYELOMA
     Route: 048
     Dates: start: 20180806, end: 20190125

REACTIONS (2)
  - Respiratory failure [Fatal]
  - H1N1 influenza [Fatal]

NARRATIVE: CASE EVENT DATE: 20190203
